FAERS Safety Report 8414924-1 (Version None)
Quarter: 2012Q2

REPORT INFORMATION
  Report Type: 
  Country: None (occurrence: None)
  Receive Date: 20120601
  Receipt Date: 20120601
  Transmission Date: 20120825
  Serious: Yes (Other)
  Sender: FDA-Public Use
  Company Number: None

PATIENT
  Sex: Male

DRUGS (2)
  1. INCIVEK [Suspect]
     Indication: HEPATITIS C
     Dosage: 750MG TID PO
     Route: 048
     Dates: start: 20120424, end: 20120529
  2. RIBAVIRIN [Suspect]
     Dosage: 600MG BID PO
     Route: 048
     Dates: start: 20120424, end: 20120529

REACTIONS (4)
  - HAEMATOCHEZIA [None]
  - PRURITUS [None]
  - CHEST PAIN [None]
  - ANORECTAL DISCOMFORT [None]
